FAERS Safety Report 9307196 (Version 2)
Quarter: 2013Q4

REPORT INFORMATION
  Report Type: Spontaneous
  Country: US (occurrence: US)
  Receive Date: 20130524
  Receipt Date: 20131127
  Transmission Date: 20140711
  Serious: Yes (Other)
  Sender: FDA-Public Use
  Company Number: CHPA2013US008458

PATIENT
  Age: 40 Year
  Sex: Female

DRUGS (5)
  1. EXCEDRIN TENSION HEADACHE [Suspect]
     Indication: MIGRAINE
     Dosage: 1 TO 2 DF, Q8H
     Route: 048
  2. EXCEDRIN TENSION HEADACHE [Suspect]
     Indication: OFF LABEL USE
  3. TREXIMET [Concomitant]
     Indication: MIGRAINE
     Dosage: UNK
  4. HYDROCODONE [Concomitant]
     Dosage: UNK
  5. IBUPROFEN [Concomitant]
     Dosage: UNK

REACTIONS (1)
  - Postural orthostatic tachycardia syndrome [Not Recovered/Not Resolved]
